FAERS Safety Report 20384854 (Version 1)
Quarter: 2022Q1

REPORT INFORMATION
  Report Type: Spontaneous
  Country: US (occurrence: US)
  Receive Date: 20220127
  Receipt Date: 20220127
  Transmission Date: 20220424
  Serious: No
  Sender: FDA-Public Use
  Company Number: US-ALLERGAN-2104559US

PATIENT
  Age: 28 Year
  Sex: Female
  Weight: 170.52 kg

DRUGS (1)
  1. BOTOX [Suspect]
     Active Substance: ONABOTULINUMTOXINA
     Indication: Migraine
     Dosage: 155 UNITS, SINGLE
     Dates: start: 20201211, end: 20201211

REACTIONS (3)
  - Eye pain [Recovered/Resolved]
  - Wrong technique in product usage process [Unknown]
  - Eyelid oedema [Recovered/Resolved]
